FAERS Safety Report 17488929 (Version 4)
Quarter: 2020Q2

REPORT INFORMATION
  Report Type: Spontaneous
  Country: JP (occurrence: JP)
  Receive Date: 20200303
  Receipt Date: 20200506
  Transmission Date: 20200713
  Serious: Yes (Hospitalization)
  Sender: FDA-Public Use
  Company Number: JP-CELGENEUS-JPN-20200209541

PATIENT
  Age: 85 Year
  Sex: Female
  Weight: 49 kg

DRUGS (35)
  1. DENOSALIN [Concomitant]
     Dosage: 1000 MILLILITER
     Route: 041
     Dates: start: 20181031, end: 20181101
  2. ACETAMINOPHEN. [Concomitant]
     Active Substance: ACETAMINOPHEN
     Indication: PERIARTHRITIS
     Dosage: 400 MILLIGRAM
     Route: 048
     Dates: start: 20200108
  3. VENETOCLAX. [Concomitant]
     Active Substance: VENETOCLAX
     Indication: ACUTE MYELOID LEUKAEMIA
     Dosage: 100 MILLIGRAM
     Route: 048
     Dates: start: 20181023, end: 20181023
  4. VENETOCLAX. [Concomitant]
     Active Substance: VENETOCLAX
     Dosage: 200 MILLIGRAM
     Route: 048
     Dates: start: 20181024, end: 20181024
  5. VENETOCLAX. [Concomitant]
     Active Substance: VENETOCLAX
     Dosage: 200 MILLIGRAM
     Route: 048
     Dates: start: 20181025, end: 20190425
  6. FEBUXOSTAT. [Concomitant]
     Active Substance: FEBUXOSTAT
     Indication: HYPERURICAEMIA
     Dosage: 60 MILLIGRAM
     Route: 048
     Dates: start: 20181030, end: 20181224
  7. KETOPROFEN. [Concomitant]
     Active Substance: KETOPROFEN
     Indication: ARTHRALGIA
     Dosage: 20 MILLIGRAM
     Route: 062
     Dates: start: 20181030
  8. DENOSALIN [Concomitant]
     Dosage: 2000 MILLILITER
     Route: 041
     Dates: start: 20181025, end: 20181029
  9. DENOSALIN [Concomitant]
     Dosage: 1000 MILLILITER
     Route: 041
     Dates: start: 20181030, end: 20181030
  10. VENETOCLAX. [Concomitant]
     Active Substance: VENETOCLAX
     Dosage: 200 MILLIGRAM
     Route: 048
     Dates: start: 20200226
  11. CLOSTRIDIUM BUTYRICUM [Concomitant]
     Active Substance: CLOSTRIDIUM BUTYRICUM SPORES STRAIN M-55
     Indication: DIARRHOEA
     Dosage: 9 GRAM
     Route: 048
     Dates: start: 20181106
  12. FLUCONAZOLE. [Concomitant]
     Active Substance: FLUCONAZOLE
     Indication: INFECTION PROPHYLAXIS
     Dosage: 200 MILLIGRAM
     Route: 048
     Dates: start: 20190427
  13. BAKTAR [Concomitant]
     Active Substance: SULFAMETHOXAZOLE\TRIMETHOPRIM
     Indication: INFECTION PROPHYLAXIS
     Dosage: 2 TABLET
     Route: 048
     Dates: start: 20190426
  14. URSODEOXYCHOLIC ACID [Concomitant]
     Active Substance: URSODIOL
     Indication: ALANINE AMINOTRANSFERASE INCREASED
     Dosage: 300 MILLIGRAM
     Route: 048
     Dates: start: 20190906
  15. DENOSALIN [Concomitant]
     Indication: PROPHYLAXIS
     Dosage: 2000 MILLILITER
     Route: 041
     Dates: start: 20181023, end: 20181023
  16. DENOSALIN [Concomitant]
     Dosage: 1000 MILLILITER
     Route: 041
     Dates: start: 20181019, end: 20181022
  17. KETOPROFEN. [Concomitant]
     Active Substance: KETOPROFEN
     Indication: ARTHRALGIA
  18. HYDROCORTISONE SODIUM [Concomitant]
     Active Substance: HYDROCORTISONE SODIUM SUCCINATE
     Indication: PLATELET TRANSFUSION
  19. FEBUXOSTAT. [Concomitant]
     Active Substance: FEBUXOSTAT
     Route: 048
  20. ESZOPICLON [Concomitant]
     Active Substance: ESZOPICLONE
     Indication: INSOMNIA
     Dosage: 1 MILLIGRAM
     Route: 048
     Dates: start: 20181122
  21. MAGNESIUM OXIDE. [Concomitant]
     Active Substance: MAGNESIUM OXIDE
     Indication: CONSTIPATION
     Dosage: 660 MILLIGRAM
     Route: 048
     Dates: start: 20191123
  22. DENOSALIN [Concomitant]
     Indication: PROPHYLAXIS AGAINST DEHYDRATION
     Dosage: 1500 MILLILITER
     Route: 041
     Dates: start: 20181024, end: 20181024
  23. DENOSALIN [Concomitant]
     Dosage: 1000 MILLILITER
     Route: 041
     Dates: start: 20181018, end: 20181018
  24. VIDAZA [Suspect]
     Active Substance: AZACITIDINE
     Indication: ACUTE MYELOID LEUKAEMIA
     Dosage: 75 MILLIGRAM/SQ. METER
     Route: 041
     Dates: start: 20191023, end: 20200219
  25. VENETOCLAX. [Concomitant]
     Active Substance: VENETOCLAX
     Dosage: 400 MILLIGRAM
     Route: 048
     Dates: start: 20181024, end: 20181024
  26. ASPIRIN. [Concomitant]
     Active Substance: ASPIRIN
     Indication: THROMBOSIS PROPHYLAXIS
     Dosage: 100 MILLIGRAM
     Route: 048
     Dates: start: 2011
  27. FEBUXOSTAT. [Concomitant]
     Active Substance: FEBUXOSTAT
     Indication: PROPHYLAXIS
     Dosage: 60 MILLIGRAM
     Route: 048
     Dates: start: 20181022, end: 20181029
  28. LEVOFLOXACIN HEMIHYDRATE [Concomitant]
     Active Substance: LEVOFLOXACIN
     Indication: INFECTION PROPHYLAXIS
     Dosage: 500 MILLIGRAM
     Route: 048
     Dates: start: 20190427
  29. DEFERASIROX. [Concomitant]
     Active Substance: DEFERASIROX
     Indication: SERUM FERRITIN DECREASED
     Dosage: 360 MILLIGRAM
     Route: 048
     Dates: start: 20190802
  30. MAGNESIUM OXIDE. [Concomitant]
     Active Substance: MAGNESIUM OXIDE
     Dosage: 330 MILLIGRAM
     Route: 048
     Dates: start: 20181201, end: 20191114
  31. DENOSALIN [Concomitant]
     Dosage: 1000 MILLILITER
     Route: 041
     Dates: start: 20181102, end: 20181107
  32. VIDAZA [Suspect]
     Active Substance: AZACITIDINE
     Dosage: 75 MILLIGRAM/SQ. METER
     Route: 041
     Dates: start: 20200327
  33. SENNOSIDE A B [Concomitant]
     Indication: CONSTIPATION
     Dosage: 12 MILLIGRAM
     Route: 065
     Dates: start: 20181123
  34. HYDROCORTISONE SODIUM [Concomitant]
     Active Substance: HYDROCORTISONE SODIUM SUCCINATE
     Indication: PLATELET TRANSFUSION
     Route: 041
     Dates: start: 20190927
  35. CARBOHYDRATES NOS W/POTASSIUM CHLORIDE/SODIUM [Concomitant]
     Indication: PROPHYLAXIS AGAINST DEHYDRATION
     Dosage: 500 MILLILITER
     Route: 041
     Dates: start: 20200220, end: 20200226

REACTIONS (1)
  - Skin laceration [Recovered/Resolved]

NARRATIVE: CASE EVENT DATE: 20200219
